FAERS Safety Report 6619475-2 (Version None)
Quarter: 2010Q1

REPORT INFORMATION
  Report Type: 
  Country: None (occurrence: None)
  Receive Date: 20100303
  Receipt Date: 20100226
  Transmission Date: 20100710
  Serious: Yes (Hospitalization)
  Sender: FDA-Public Use
  Company Number: ALL1-2010-01034

PATIENT
  Age: 69 Year
  Sex: Male

DRUGS (2)
  1. FOSRENOL [Suspect]
     Indication: HYPERPHOSPHATAEMIA
     Dosage: 1000 MG, OTHER (WITH SNACKS), ORAL, 500 MG, OTHER (WITH SNACKS), ORAL
     Route: 048
     Dates: start: 20090101
  2. FOSRENOL [Suspect]
     Indication: HYPERPHOSPHATAEMIA
     Dosage: 1000 MG, OTHER (WITH SNACKS), ORAL, 500 MG, OTHER (WITH SNACKS), ORAL
     Route: 048
     Dates: start: 20090101

REACTIONS (1)
  - HOSPITALISATION [None]
